FAERS Safety Report 8827795 (Version 1)
Quarter: 2012Q4

REPORT INFORMATION
  Report Type: 
  Country: US (occurrence: US)
  Receive Date: 20121005
  Receipt Date: 20121005
  Transmission Date: 20130627
  Serious: Yes (Other)
  Sender: FDA-Public Use
  Company Number: US-B.I. PHARMACEUTICALS,INC./RIDGEFIELD-2012-EU-04952GD

PATIENT

DRUGS (2)
  1. DABIGATRAN ETEXILATE [Suspect]
     Indication: ATRIAL FIBRILLATION
     Dosage: 300 mg
  2. HEPARIN [Suspect]
     Indication: ANTICOAGULANT THERAPY
     Dosage: initial bolus of 8000 - 12000 units, followed by serial doses of 1000 - 4000 units as needed

REACTIONS (1)
  - Pericardial effusion [Unknown]
